FAERS Safety Report 11395252 (Version 1)
Quarter: 2015Q3

REPORT INFORMATION
  Report Type: Spontaneous
  Country: None (occurrence: None)
  Receive Date: 20150817
  Receipt Date: 20150817
  Transmission Date: 20151125
  Serious: Yes (Life-Threatening)
  Sender: FDA-Public Use
  Company Number: None

PATIENT
  Age: 24 Year
  Sex: Female

DRUGS (4)
  1. REGULAR INSULIN DRIP [Concomitant]
  2. DILAUDID [Concomitant]
     Active Substance: HYDROMORPHONE HYDROCHLORIDE
  3. SAGE CHLORHEX WIPES 2% SAGE [Suspect]
     Active Substance: CHLORHEXIDINE GLUCONATE
     Indication: PROPHYLAXIS
     Route: 061
     Dates: start: 20150815, end: 20150816
  4. ZOFRAN [Concomitant]
     Active Substance: ONDANSETRON HYDROCHLORIDE

REACTIONS (6)
  - Rash erythematous [None]
  - Peripheral swelling [None]
  - Swollen tongue [None]
  - Lip swelling [None]
  - Swelling face [None]
  - Rash generalised [None]

NARRATIVE: CASE EVENT DATE: 20150816
